FAERS Safety Report 9115891 (Version 1)
Quarter: 2013Q1

REPORT INFORMATION
  Report Type: Report from Study
  Country: GB (occurrence: GB)
  Receive Date: 20130225
  Receipt Date: 20130225
  Transmission Date: 20140127
  Serious: Yes (Hospitalization)
  Sender: FDA-Public Use
  Company Number: GB-GLAXOSMITHKLINE-B0832108B

PATIENT
  Age: 86 Year
  Sex: Male
  Weight: 74 kg

DRUGS (10)
  1. OFATUMUMAB [Suspect]
     Indication: CHRONIC LYMPHOCYTIC LEUKAEMIA
     Route: 042
     Dates: start: 20120910
  2. CHLORAMBUCIL [Suspect]
     Indication: CHRONIC LYMPHOCYTIC LEUKAEMIA
     Route: 048
     Dates: start: 20121105
  3. ALLOPURINOL [Suspect]
     Indication: PROPHYLAXIS
     Dosage: 300MG PER DAY
     Route: 048
     Dates: start: 20121105, end: 20121108
  4. ACICLOVIR [Suspect]
     Indication: PRODUCT USED FOR UNKNOWN INDICATION
     Route: 065
  5. HYDROCORTISONE [Concomitant]
     Indication: PREMEDICATION
     Dosage: 100MG PER DAY
     Route: 042
     Dates: start: 20121105, end: 20121105
  6. CHLORPHENIRAMINE [Concomitant]
     Indication: RASH
     Dosage: 4MG TWICE PER DAY
     Route: 048
     Dates: start: 20121108, end: 20121122
  7. LANSOPRAZOLE [Concomitant]
     Indication: PROPHYLAXIS
     Dosage: 30MG PER DAY
     Route: 048
     Dates: start: 20120814
  8. PARACETAMOL [Concomitant]
     Indication: PREMEDICATION
     Dosage: 1G PER DAY
     Route: 048
     Dates: start: 20121105, end: 20121105
  9. CHLORPHENIRAMINE [Concomitant]
     Indication: PREMEDICATION
     Dosage: 10MG PER DAY
     Route: 042
     Dates: start: 20121105, end: 20121105
  10. TAMSULOSINE [Concomitant]
     Indication: BENIGN PROSTATIC HYPERPLASIA
     Dosage: 400MCG PER DAY
     Route: 048
     Dates: start: 20120907

REACTIONS (1)
  - Skin infection [Recovered/Resolved with Sequelae]
